FAERS Safety Report 8613219-0 (Version None)
Quarter: 2012Q3

REPORT INFORMATION
  Report Type: 
  Country: None (occurrence: None)
  Receive Date: 20120822
  Receipt Date: 20120815
  Transmission Date: 20120928
  Serious: Yes (Death, Other)
  Sender: FDA-Public Use
  Company Number: VN-BAXTER-2012BAX014816

PATIENT
  Sex: Male

DRUGS (1)
  1. DIANEAL [Suspect]
     Indication: PERITONEAL DIALYSIS
     Dosage: 4 BAGS/DAY
     Route: 033
     Dates: start: 20110328

REACTIONS (3)
  - LUNG ABSCESS [None]
  - CARDIAC FAILURE [None]
  - RESPIRATORY FAILURE [None]
